FAERS Safety Report 8876390 (Version 1)
Quarter: 2012Q4

REPORT INFORMATION
  Report Type: 
  Country: US (occurrence: US)
  Receive Date: 20121031
  Receipt Date: 20121031
  Transmission Date: 20130627
  Serious: Yes (Hospitalization)
  Sender: FDA-Public Use
  Company Number: US-BAYER-2012-112424

PATIENT
  Age: 18 Year
  Sex: Female

DRUGS (7)
  1. YAZ [Suspect]
  2. MORPHINE [Concomitant]
     Dosage: UNK
     Dates: start: 20100505
  3. PENICILLIN VK [Concomitant]
     Indication: RHEUMATIC HEART DISEASE
     Dosage: UNK
     Dates: start: 20100503
  4. LASIX [Concomitant]
     Dosage: UNK UNK, PRN
     Dates: start: 20100503
  5. HYDROCODONE W/ACETAMINOPHEN [Concomitant]
  6. CEPHALEXIN [Concomitant]
  7. AZITHROMYCIN [Concomitant]

REACTIONS (1)
  - Peripheral artery thrombosis [None]
